FAERS Safety Report 26111228 (Version 1)
Quarter: 2025Q4

REPORT INFORMATION
  Report Type: Spontaneous
  Country: CA (occurrence: CA)
  Receive Date: 20251202
  Receipt Date: 20251202
  Transmission Date: 20260117
  Serious: Yes (Disabling)
  Sender: AUROBINDO
  Company Number: CA-AUROBINDO-AUR-APL-2025-060713

PATIENT
  Age: 44 Year
  Sex: Female
  Weight: 65 kg

DRUGS (1)
  1. RUFINAMIDE [Suspect]
     Active Substance: RUFINAMIDE
     Indication: Epilepsy
     Dosage: 400 MILLIGRAM

REACTIONS (2)
  - Somnolence [Recovered/Resolved]
  - Drug ineffective [Recovered/Resolved]
